FAERS Safety Report 14821885 (Version 2)
Quarter: 2018Q2

REPORT INFORMATION
  Report Type: Spontaneous
  Country: BR (occurrence: BR)
  Receive Date: 20180427
  Receipt Date: 20180607
  Transmission Date: 20180711
  Serious: Yes (Other)
  Sender: FDA-Public Use
  Company Number: PHHY2018BR072538

PATIENT
  Sex: Male
  Weight: 116 kg

DRUGS (1)
  1. TRILEPTAL [Suspect]
     Active Substance: OXCARBAZEPINE
     Indication: EPILEPSY
     Dosage: 300 MG, BID (1 TABLET OF 300 MG IN MORNING AND 1 TABLET OF 300 MG AT 10 PM)
     Route: 048
     Dates: start: 20170126

REACTIONS (5)
  - Petit mal epilepsy [Recovering/Resolving]
  - Oral discomfort [Recovering/Resolving]
  - Blister [Recovering/Resolving]
  - Plicated tongue [Recovering/Resolving]
  - Pruritus [Recovering/Resolving]
